FAERS Safety Report 15758180 (Version 1)
Quarter: 2018Q4

REPORT INFORMATION
  Report Type: Spontaneous
  Country: US (occurrence: US)
  Receive Date: 20181225
  Receipt Date: 20181225
  Transmission Date: 20190205
  Serious: No
  Sender: FDA-Public Use
  Company Number: US-ASTRAZENECA-2018SF66773

PATIENT
  Age: 80 Year
  Sex: Female

DRUGS (1)
  1. CICLESONIDE [Suspect]
     Active Substance: CICLESONIDE
     Route: 065

REACTIONS (1)
  - Drug hypersensitivity [Unknown]
